FAERS Safety Report 24063919 (Version 1)
Quarter: 2024Q3

REPORT INFORMATION
  Report Type: Spontaneous
  Country: GB (occurrence: GB)
  Receive Date: 20240709
  Receipt Date: 20240709
  Transmission Date: 20241017
  Serious: Yes (Other)
  Sender: DR REDDYS
  Company Number: None

PATIENT
  Age: 75 Year
  Sex: Female
  Weight: 55 kg

DRUGS (9)
  1. AMLODIPINE [Suspect]
     Active Substance: AMLODIPINE BESYLATE
     Indication: Ill-defined disorder
     Dosage: AMLODIPINE 5MG TABLETS
  2. ASPIRIN [Concomitant]
     Active Substance: ASPIRIN
     Indication: Ill-defined disorder
     Dosage: TAKE ONE DAILY?TPP YC - PLEASE RECLASSIFY
     Dates: start: 20230830
  3. BISOPROLOL [Concomitant]
     Active Substance: BISOPROLOL\BISOPROLOL FUMARATE
     Indication: Ill-defined disorder
     Dosage: TAKE ONE DAILY?TPP YC - PLEASE RECLASSIFY
     Dates: start: 20230830
  4. NITROGLYCERIN [Concomitant]
     Active Substance: NITROGLYCERIN
     Indication: Ill-defined disorder
     Dosage: ONE PUFF UNDER THE TONGUE WHEN REQUIRED FOR THE...?TPP YC - PLEASE RECLASSIFY
     Route: 060
     Dates: start: 20230830
  5. OMEPRAZOLE [Concomitant]
     Active Substance: OMEPRAZOLE
     Indication: Ill-defined disorder
     Dosage: TAKE ONE DAILY?TPP YC - PLEASE RECLASSIFY
     Dates: start: 20230830
  6. ESTRIOL [Concomitant]
     Active Substance: ESTRIOL
     Indication: Ill-defined disorder
     Dosage: APPLY AT NIGHT TWICE A WEEK?TPP YC - PLEASE RECLASSIFY
     Dates: start: 20240306, end: 20240417
  7. AMLODIPINE [Concomitant]
     Active Substance: AMLODIPINE BESYLATE
     Indication: Ill-defined disorder
     Dosage: TAKE ONE TABLET DAILY?TPP YC - PLEASE RECLASSIFY
     Dates: start: 20240417, end: 20240701
  8. ATORVASTATIN [Concomitant]
     Active Substance: ATORVASTATIN
     Indication: Ill-defined disorder
     Dosage: TAKE ONE TABLET DAILY?TPP YC - PLEASE RECLASSIFY
     Dates: start: 20240417
  9. ESTRIOL [Concomitant]
     Active Substance: ESTRIOL
     Indication: Ill-defined disorder
     Dosage: (TOPICAL OESTROGEN) APPLY ONE APPLICATORFUL INT...?TPP YC - PLEASE RECLASSIFY
     Route: 061
     Dates: start: 20240417

REACTIONS (2)
  - Joint swelling [Unknown]
  - Peripheral swelling [Unknown]
